FAERS Safety Report 8339726-6 (Version None)
Quarter: 2012Q2

REPORT INFORMATION
  Report Type: 
  Country: None (occurrence: None)
  Receive Date: 20120507
  Receipt Date: 20120503
  Transmission Date: 20120825
  Serious: Yes (Death, Hospitalization, Other)
  Sender: FDA-Public Use
  Company Number: PHHY2012BR038105

PATIENT
  Age: 67 Year
  Sex: Female

DRUGS (1)
  1. DIOVAN HCT [Suspect]
     Indication: HYPERTENSION
     Dosage: 1 DF A DAY (160MG VALSARTAN/ 12.5MG HCTZ),
     Route: 048

REACTIONS (6)
  - ISCHAEMIA [None]
  - PNEUMONIA [None]
  - ASPIRATION [None]
  - DEATH [None]
  - PARKINSON'S DISEASE [None]
  - HYPOKINESIA [None]
